FAERS Safety Report 5940355-X (Version None)
Quarter: 2008Q4

REPORT INFORMATION
  Report Type: 
  Country: None (occurrence: None)
  Receive Date: 20081104
  Receipt Date: 20081028
  Transmission Date: 20090506
  Serious: Yes (Death, Life-Threatening)
  Sender: FDA-Public Use
  Company Number: FR-AVENTIS-200813836FR

PATIENT
  Age: 84 Year
  Sex: Male

DRUGS (4)
  1. RIFATER [Suspect]
     Route: 048
     Dates: start: 20080131, end: 20080207
  2. VANCOMYCIN HCL [Suspect]
     Dates: start: 20080127, end: 20080131
  3. MYAMBUTOL [Suspect]
     Route: 048
     Dates: start: 20080131, end: 20080207
  4. TRIFLUCAN [Suspect]
     Indication: UNEVALUABLE EVENT
     Dates: start: 20080129, end: 20080207

REACTIONS (2)
  - LINEAR IGA DISEASE [None]
  - PNEUMONIA [None]
